FAERS Safety Report 4345219-3 (Version None)
Quarter: 2004Q2

REPORT INFORMATION
  Report Type: 
  Country: None (occurrence: None)
  Receive Date: 20040423
  Receipt Date: 20000308
  Transmission Date: 20050107
  Serious: Yes (Hospitalization, Disabling)
  Sender: FDA-Public Use
  Company Number: US-ROCHE-231499

PATIENT
  Age: 15 Year
  Sex: Male

DRUGS (5)
  1. ACCUTANE [Suspect]
     Indication: ACNE
     Route: 048
     Dates: start: 19981222
  2. ACCUTANE [Suspect]
     Route: 048
  3. ACCUTANE [Suspect]
     Route: 048
     Dates: end: 19990421
  4. ACCUTANE [Suspect]
     Route: 048
     Dates: start: 19990422, end: 19990715
  5. ZANTAC [Concomitant]
     Route: 048

REACTIONS (14)
  - ABDOMINAL PAIN [None]
  - ABDOMINAL PAIN UPPER [None]
  - ABNORMAL FAECES [None]
  - ANAEMIA [None]
  - CROHN'S DISEASE [None]
  - EPISTAXIS [None]
  - FATIGUE [None]
  - GASTROENTERITIS [None]
  - INFLAMMATORY BOWEL DISEASE [None]
  - KERATOCONJUNCTIVITIS SICCA [None]
  - MALLORY-WEISS SYNDROME [None]
  - SMALL INTESTINAL OBSTRUCTION [None]
  - WEIGHT DECREASED [None]
  - WEIGHT INCREASED [None]
